FAERS Safety Report 22724750 (Version 3)
Quarter: 2024Q1

REPORT INFORMATION
  Report Type: Report from Study
  Country: GB (occurrence: GB)
  Receive Date: 20230719
  Receipt Date: 20240102
  Transmission Date: 20240410
  Serious: Yes (Hospitalization, Other)
  Sender: FDA-Public Use
  Company Number: None

PATIENT
  Age: 55 Year
  Sex: Male

DRUGS (6)
  1. AMITRIPTYLINE [Suspect]
     Active Substance: AMITRIPTYLINE
     Indication: Psoriatic arthropathy
     Dosage: 10 MG, QD
     Route: 048
     Dates: start: 20220705, end: 20221007
  2. SECUKINUMAB [Suspect]
     Active Substance: SECUKINUMAB
     Indication: Psoriatic arthropathy
     Dosage: 300 MG, QW (WK 0, 1, 2, 3, 4 THEN QMO)
     Route: 058
     Dates: start: 20200206
  3. CYCLOSPORINE [Concomitant]
     Active Substance: CYCLOSPORINE
     Indication: Product used for unknown indication
     Dosage: UNK
  4. METHOTREXATE [Concomitant]
     Active Substance: METHOTREXATE
     Indication: Product used for unknown indication
     Dosage: UNK
  5. SECUKINUMAB [Suspect]
     Active Substance: SECUKINUMAB
     Indication: Psoriatic arthropathy
     Dosage: 300 MG, QMO
     Route: 058
     Dates: start: 20200206
  6. SECUKINUMAB [Suspect]
     Active Substance: SECUKINUMAB
     Indication: Product used for unknown indication
     Dosage: 300 MG, QMO
     Route: 058
     Dates: end: 20211226

REACTIONS (42)
  - Myxoid cyst [Unknown]
  - Psoriatic arthropathy [Not Recovered/Not Resolved]
  - Dupuytren^s contracture [Unknown]
  - Malaise [Recovering/Resolving]
  - Therapeutic response shortened [Not Recovered/Not Resolved]
  - Campylobacter infection [Recovering/Resolving]
  - Haematochezia [Unknown]
  - Actinic keratosis [Not Recovered/Not Resolved]
  - Pain [Recovering/Resolving]
  - Blister [Recovering/Resolving]
  - Ear infection [Recovering/Resolving]
  - Irritability [Recovered/Resolved]
  - Paranoia [Recovered/Resolved]
  - Acne pustular [Recovering/Resolving]
  - Peripheral coldness [Not Recovered/Not Resolved]
  - Nasopharyngitis [Recovering/Resolving]
  - Arthralgia [Not Recovered/Not Resolved]
  - Injection site pain [Unknown]
  - Psoriasis [Not Recovered/Not Resolved]
  - Acne [Recovering/Resolving]
  - Hypoaesthesia [Not Recovered/Not Resolved]
  - Agitation [Recovering/Resolving]
  - Ophthalmic migraine [Recovering/Resolving]
  - Tongue blistering [Recovering/Resolving]
  - Blindness transient [Recovering/Resolving]
  - Eye oedema [Recovering/Resolving]
  - Iron deficiency [Not Recovered/Not Resolved]
  - Paraesthesia [Not Recovered/Not Resolved]
  - Insomnia [Recovered/Resolved]
  - Vertigo [Recovering/Resolving]
  - COVID-19 [Recovering/Resolving]
  - Body temperature increased [Recovering/Resolving]
  - Joint swelling [Recovered/Resolved]
  - Erythema [Unknown]
  - Dry skin [Unknown]
  - Skin infection [Recovering/Resolving]
  - Arthritis [Recovering/Resolving]
  - Suicidal ideation [Recovering/Resolving]
  - Post-traumatic stress disorder [Recovering/Resolving]
  - Condition aggravated [Not Recovered/Not Resolved]
  - Neck pain [Not Recovered/Not Resolved]
  - Gait disturbance [Not Recovered/Not Resolved]

NARRATIVE: CASE EVENT DATE: 20210401
